FAERS Safety Report 7501748-2 (Version None)
Quarter: 2011Q2

REPORT INFORMATION
  Report Type: 
  Country: None (occurrence: None)
  Receive Date: 20110523
  Receipt Date: 20110523
  Transmission Date: 20111010
  Serious: Yes (Death)
  Sender: FDA-Public Use
  Company Number: None

PATIENT
  Age: 79 Year
  Sex: Female

DRUGS (3)
  1. REVLIMID [Suspect]
     Indication: MYELODYSPLASTIC SYNDROME
     Dosage: 10MG QOD ORALLY
     Route: 048
  2. EXJADE [Concomitant]
  3. PREDNISONE [Concomitant]

REACTIONS (5)
  - CELLULITIS [None]
  - PNEUMONIA [None]
  - NEUTROPENIA [None]
  - THROMBOCYTOPENIA [None]
  - SEPSIS [None]
